FAERS Safety Report 17223893 (Version 1)
Quarter: 2020Q1

REPORT INFORMATION
  Report Type: Spontaneous
  Country: NO (occurrence: NO)
  Receive Date: 20200102
  Receipt Date: 20200102
  Transmission Date: 20200409
  Serious: Yes (Life-Threatening, Hospitalization)
  Sender: FDA-Public Use
  Company Number: NO-SUN PHARMACEUTICAL INDUSTRIES LTD-2019R1-231806

PATIENT
  Age: 6 Decade
  Sex: Female

DRUGS (3)
  1. MECLIZINE [Suspect]
     Active Substance: MECLIZINE HYDROCHLORIDE
     Indication: PRODUCT USED FOR UNKNOWN INDICATION
     Dosage: UNK (0.5 GM)
     Route: 065
  2. FLECAINIDE [Suspect]
     Active Substance: FLECAINIDE
     Indication: PRODUCT USED FOR UNKNOWN INDICATION
     Dosage: UNK (4-5 GM)
     Route: 065
  3. OXAZEPAM. [Suspect]
     Active Substance: OXAZEPAM
     Indication: PRODUCT USED FOR UNKNOWN INDICATION
     Dosage: UNK (0.3 GM)
     Route: 065

REACTIONS (10)
  - Electrocardiogram QRS complex prolonged [Recovered/Resolved]
  - Stress cardiomyopathy [Recovered/Resolved]
  - Pulmonary oedema [Recovering/Resolving]
  - Atrial fibrillation [Recovered/Resolved]
  - Electrocardiogram QT prolonged [Recovered/Resolved]
  - Circulatory collapse [Recovered/Resolved]
  - Bradycardia [Recovered/Resolved]
  - Toxicity to various agents [Recovering/Resolving]
  - Hypotension [Recovered/Resolved]
  - Electrocardiogram T wave inversion [Not Recovered/Not Resolved]
